FAERS Safety Report 24825808 (Version 4)
Quarter: 2025Q2

REPORT INFORMATION
  Report Type: Spontaneous
  Country: US (occurrence: US)
  Receive Date: 20250109
  Receipt Date: 20250528
  Transmission Date: 20250717
  Serious: Yes (Other)
  Sender: PFIZER
  Company Number: US-PFIZER INC-202200631754

PATIENT
  Age: 64 Year
  Sex: Male
  Weight: 67.13 kg

DRUGS (9)
  1. XELJANZ [Suspect]
     Active Substance: TOFACITINIB CITRATE
     Indication: Colitis ulcerative
     Dosage: TAKE 1 TABLET(S) TWICE A DAY BY ORAL ROUTE WITH MEAL(S) FOR 90 DAYS
     Route: 048
  2. XELJANZ [Suspect]
     Active Substance: TOFACITINIB CITRATE
     Dosage: 5MG ONCE DAILY
     Route: 048
     Dates: start: 2018
  3. XELJANZ [Suspect]
     Active Substance: TOFACITINIB CITRATE
     Dosage: 5 MG, 2X/DAY
     Route: 048
     Dates: start: 2021
  4. AMLODIPINE [Concomitant]
     Active Substance: AMLODIPINE BESYLATE
  5. FISH OIL [Concomitant]
     Active Substance: FISH OIL
  6. COBAMAMIDE [Concomitant]
     Active Substance: COBAMAMIDE
  7. OMEGA [CONVALLARIA MAJALIS;CRATAEGUS LAEVIGATA;PROXYPHYLLINE] [Concomitant]
  8. LISINOPRIL [Concomitant]
     Active Substance: LISINOPRIL
  9. METOPROLOL [Concomitant]
     Active Substance: METOPROLOL

REACTIONS (3)
  - Tuberculosis [Unknown]
  - Abdominal pain [Recovering/Resolving]
  - Off label use [Unknown]

NARRATIVE: CASE EVENT DATE: 20180101
